FAERS Safety Report 6769341-7 (Version None)
Quarter: 2010Q2

REPORT INFORMATION
  Report Type: 
  Country: None (occurrence: None)
  Receive Date: 20100607
  Receipt Date: 20100601
  Transmission Date: 20101027
  Serious: Yes (Hospitalization)
  Sender: FDA-Public Use
  Company Number: WAES 0806CAN00001

PATIENT
  Sex: Female

DRUGS (2)
  1. JANUVIA [Suspect]
     Indication: TYPE 2 DIABETES MELLITUS
     Dosage: 100 MG/AM PO
     Route: 048
     Dates: start: 20080404
  2. METFORMIN HCL [Concomitant]

REACTIONS (12)
  - ANGINA PECTORIS [None]
  - BLOOD GLUCOSE INCREASED [None]
  - DISTURBANCE IN ATTENTION [None]
  - GASTROENTERITIS [None]
  - HOT FLUSH [None]
  - HUNGER [None]
  - HYPERHIDROSIS [None]
  - INCREASED APPETITE [None]
  - MIDDLE INSOMNIA [None]
  - NIGHT SWEATS [None]
  - PALPITATIONS [None]
  - TREMOR [None]
